FAERS Safety Report 5572805-5 (Version None)
Quarter: 2007Q4

REPORT INFORMATION
  Report Type: 
  Country: None (occurrence: None)
  Receive Date: 20071223
  Receipt Date: 20071213
  Transmission Date: 20080405
  Serious: Yes (Other)
  Sender: FDA-Public Use
  Company Number: PHHY2007CA00973

PATIENT
  Age: 76 Year
  Sex: Male

DRUGS (1)
  1. EXELON [Suspect]
     Indication: DEMENTIA ALZHEIMER'S TYPE
     Route: 048
     Dates: start: 20071107

REACTIONS (5)
  - ABDOMINAL PAIN UPPER [None]
  - CONFUSIONAL STATE [None]
  - GAIT DISTURBANCE [None]
  - MOVEMENT DISORDER [None]
  - TREMOR [None]
